FAERS Safety Report 16325151 (Version 1)
Quarter: 2019Q2

REPORT INFORMATION
  Report Type: Spontaneous
  Country: US (occurrence: US)
  Receive Date: 20190328
  Receipt Date: 20190328
  Transmission Date: 20190711
  Serious: No
  Sender: FDA-Public Use
  Company Number: None

PATIENT

DRUGS (2)
  1. EFFEXOR XR [Suspect]
     Active Substance: VENLAFAXINE HYDROCHLORIDE
  2. PRILOSEC [Suspect]
     Active Substance: OMEPRAZOLE MAGNESIUM

REACTIONS (7)
  - Nausea [None]
  - Drug withdrawal syndrome [None]
  - Wrong patient received product [None]
  - Drug dispensed to wrong patient [None]
  - Drug withdrawal headache [None]
  - Vision blurred [None]
  - Somnolence [None]
